FAERS Safety Report 9197785 (Version 1)
Quarter: 2013Q1

REPORT INFORMATION
  Report Type: Spontaneous
  Country: US (occurrence: US)
  Receive Date: 20130328
  Receipt Date: 20130328
  Transmission Date: 20140127
  Serious: Yes (Disabling, Other)
  Sender: FDA-Public Use
  Company Number: PHEH2013US004561

PATIENT
  Age: 34 Year
  Sex: Female
  Weight: 79.37 kg

DRUGS (7)
  1. GILENYA [Suspect]
     Indication: MULTIPLE SCLEROSIS
     Dosage: 0.5 MG, QD
     Route: 048
     Dates: start: 20130215
  2. FISH OIL [Concomitant]
  3. VITAMIIN C [Concomitant]
  4. PRILOSEC [Concomitant]
  5. VITAMIN B [Concomitant]
  6. CALCIUM [Concomitant]
  7. MAGNESIUM [Concomitant]

REACTIONS (3)
  - Vision blurred [Not Recovered/Not Resolved]
  - Blindness [Unknown]
  - Eye pain [Unknown]
